FAERS Safety Report 9495274 (Version 5)
Quarter: 2014Q1

REPORT INFORMATION
  Report Type: Spontaneous
  Country: CH (occurrence: CH)
  Receive Date: 20130903
  Receipt Date: 20140205
  Transmission Date: 20141002
  Serious: Yes (Hospitalization)
  Sender: FDA-Public Use
  Company Number: CH-ELI_LILLY_AND_COMPANY-CH201308008108

PATIENT
  Age: 74 Year
  Sex: Male
  Weight: 75 kg

DRUGS (6)
  1. EFIENT [Suspect]
     Indication: STENT PLACEMENT
     Dosage: 60 MG, SINGLE
     Route: 048
     Dates: start: 20110329, end: 20110329
  2. EFIENT [Suspect]
     Dosage: 10 MG, QD
     Route: 048
     Dates: start: 20110330
  3. ASPIRIN [Suspect]
     Dosage: 100 MG, UNKNOWN
     Route: 065
  4. ASPIRIN [Suspect]
     Dosage: 100 MG, QD
  5. DORMICUM                           /00634101/ [Concomitant]
     Dosage: 3 MG, UNK
  6. XYLOCAINE                          /00033401/ [Concomitant]
     Dosage: 10 %, UNK

REACTIONS (4)
  - Pancreatitis acute [Recovered/Resolved]
  - Retroperitoneal haemorrhage [Recovered/Resolved]
  - Gastritis [Unknown]
  - Cholelithiasis [Unknown]
